FAERS Safety Report 4568665-1 (Version None)
Quarter: 2005Q1

REPORT INFORMATION
  Report Type: 
  Country: None (occurrence: None)
  Receive Date: 20050202
  Receipt Date: 20041104
  Transmission Date: 20050727
  Serious: Yes (Death, Hospitalization, Disabling)
  Sender: FDA-Public Use
  Company Number: JP-MERCK-0411USA01571

PATIENT
  Age: 86 Year
  Sex: Male
  Weight: 50 kg

DRUGS (5)
  1. DECADRON [Suspect]
     Indication: PROSTATE CANCER
     Route: 048
     Dates: start: 20010205, end: 20010906
  2. DECADRON [Suspect]
     Indication: PAIN
     Route: 048
     Dates: start: 20010205, end: 20010906
  3. VOLTAREN [Concomitant]
     Indication: PAIN
     Route: 054
     Dates: start: 19990311, end: 20020308
  4. CATLEP [Concomitant]
     Indication: PAIN
     Route: 061
     Dates: start: 19990311, end: 20020308
  5. LENDORMIN [Concomitant]
     Indication: INSOMNIA
     Route: 048
     Dates: start: 19990311, end: 20020308

REACTIONS (3)
  - CONDITION AGGRAVATED [None]
  - HUMERUS FRACTURE [None]
  - PROSTATE CANCER [None]
